FAERS Safety Report 14778046 (Version 1)
Quarter: 2018Q2

REPORT INFORMATION
  Report Type: Spontaneous
  Country: US (occurrence: US)
  Receive Date: 20180419
  Receipt Date: 20180419
  Transmission Date: 20180711
  Serious: No
  Sender: FDA-Public Use
  Company Number: US-BAYER-2018-075357

PATIENT
  Sex: Female

DRUGS (1)
  1. GADAVIST [Suspect]
     Active Substance: GADOBUTROL
     Indication: NUCLEAR MAGNETIC RESONANCE IMAGING BREAST
     Dosage: UNK, ONCE
     Route: 042
     Dates: start: 20180416, end: 20180416

REACTIONS (2)
  - Nausea [None]
  - Feeling hot [None]

NARRATIVE: CASE EVENT DATE: 20180416
